FAERS Safety Report 10089890 (Version 1)
Quarter: 2014Q2

REPORT INFORMATION
  Report Type: Report from Study
  Country: US (occurrence: US)
  Receive Date: 20140421
  Receipt Date: 20140421
  Transmission Date: 20141212
  Serious: No
  Sender: FDA-Public Use
  Company Number: US-ABBVIE-13P-163-1118084-00

PATIENT
  Age: 12 Year
  Sex: 0

DRUGS (3)
  1. LUPRON (PEDIATRIC) [Suspect]
     Indication: PRECOCIOUS PUBERTY
     Dates: start: 201205, end: 201211
  2. KEPPRA [Concomitant]
     Indication: PRODUCT USED FOR UNKNOWN INDICATION
     Dosage: 2 1/2 TSP TWICE A DAY
  3. LAMICTAL [Concomitant]
     Indication: PRODUCT USED FOR UNKNOWN INDICATION

REACTIONS (4)
  - Irritability [Not Recovered/Not Resolved]
  - Abnormal behaviour [Not Recovered/Not Resolved]
  - Erection increased [Not Recovered/Not Resolved]
  - Precocious puberty [Not Recovered/Not Resolved]
